FAERS Safety Report 7606551-0 (Version None)
Quarter: 2011Q3

REPORT INFORMATION
  Report Type: 
  Country: None (occurrence: None)
  Receive Date: 20110713
  Receipt Date: 20110629
  Transmission Date: 20111222
  Serious: Yes (Other)
  Sender: FDA-Public Use
  Company Number: PHHY2011US59035

PATIENT
  Sex: Female

DRUGS (8)
  1. DIOVAN [Suspect]
     Dosage: 320 MG, UNK
     Dates: start: 20110520
  2. DOLCAR [Suspect]
     Dosage: 240 MG, UNK
  3. ASPIRIN [Concomitant]
  4. DIOVAN [Suspect]
     Dosage: 160 MG, UNK
  5. FOLIC ACID [Concomitant]
  6. CALCIUM CARBONATE [Concomitant]
     Dosage: 2000 MG, UNK
  7. PROVACL GENERIC FORM [Concomitant]
  8. VITAMIN D [Concomitant]
     Dosage: 2000 IU, UNK

REACTIONS (6)
  - CONDITION AGGRAVATED [None]
  - DIABETES MELLITUS [None]
  - OEDEMA PERIPHERAL [None]
  - FATIGUE [None]
  - BLOOD PRESSURE SYSTOLIC DECREASED [None]
  - CELLULITIS [None]
